FAERS Safety Report 8144294 (Version 6)
Quarter: 2013Q2

REPORT INFORMATION
  Report Type: Spontaneous
  Country: US (occurrence: US)
  Receive Date: 20110920
  Receipt Date: 20130621
  Transmission Date: 20140414
  Serious: Yes (Hospitalization, Other)
  Sender: FDA-Public Use
  Company Number: US-ROCHE-803106

PATIENT
  Age: 26 Year
  Sex: Female
  Weight: 54.48 kg

DRUGS (8)
  1. ACCUTANE [Suspect]
     Indication: ACNE
     Route: 065
     Dates: start: 20020321, end: 20021010
  2. ACCUTANE [Suspect]
     Route: 065
     Dates: start: 20031224, end: 20040622
  3. DEXEDRINE [Concomitant]
  4. ENPRESSE [Concomitant]
  5. FLUOXETINE [Concomitant]
  6. PREVACID [Concomitant]
  7. ZELNORM [Concomitant]
  8. METOCLOPRAMIDE [Concomitant]

REACTIONS (9)
  - Gastrointestinal hypomotility [Unknown]
  - Depression [Unknown]
  - Intestinal obstruction [Unknown]
  - Attention deficit/hyperactivity disorder [Unknown]
  - Dry skin [Unknown]
  - Epistaxis [Unknown]
  - Acne [Unknown]
  - Arthralgia [Unknown]
  - Lip dry [Unknown]
